FAERS Safety Report 14913839 (Version 12)
Quarter: 2025Q1

REPORT INFORMATION
  Report Type: Spontaneous
  Country: US (occurrence: US)
  Receive Date: 20180518
  Receipt Date: 20250321
  Transmission Date: 20250408
  Serious: Yes (Other)
  Sender: PFIZER
  Company Number: US-PFIZER INC-2018199309

PATIENT
  Age: 75 Year
  Sex: Female

DRUGS (2)
  1. XELJANZ XR [Suspect]
     Active Substance: TOFACITINIB CITRATE
  2. XELJANZ XR [Suspect]
     Active Substance: TOFACITINIB CITRATE

REACTIONS (6)
  - Back disorder [Unknown]
  - Musculoskeletal disorder [Unknown]
  - Pain [Unknown]
  - Malaise [Unknown]
  - Arthropathy [Unknown]
  - Hypoacusis [Not Recovered/Not Resolved]
